FAERS Safety Report 12320135 (Version 1)
Quarter: 2016Q2

REPORT INFORMATION
  Report Type: Spontaneous
  Country: PL (occurrence: PL)
  Receive Date: 20160429
  Receipt Date: 20160429
  Transmission Date: 20160815
  Serious: Yes (Hospitalization)
  Sender: FDA-Public Use
  Company Number: PL-IMPAX LABORATORIES, INC-IMP_07822_2014

PATIENT
  Age: 30 Year
  Sex: Female

DRUGS (1)
  1. DIVALPROEX SODIUM ER [Suspect]
     Active Substance: DIVALPROEX SODIUM
     Indication: SEIZURE
     Dosage: 300 MG, 2 /DAY
     Route: 065

REACTIONS (4)
  - Cyanosis [Unknown]
  - Nail discolouration [Unknown]
  - Skin papilloma [Unknown]
  - Onycholysis [Unknown]
